FAERS Safety Report 22594029 (Version 1)
Quarter: 2023Q2

REPORT INFORMATION
  Report Type: Other
  Country: CN (occurrence: CN)
  Receive Date: 20230613
  Receipt Date: 20230613
  Transmission Date: 20230722
  Serious: Yes (Life-Threatening, Hospitalization)
  Sender: FDA-Public Use
  Company Number: CN-GE HEALTHCARE-2023CSU004546

PATIENT
  Age: 76 Year
  Sex: Male

DRUGS (2)
  1. VISIPAQUE [Suspect]
     Active Substance: IODIXANOL
     Indication: Angiogram cerebral
     Dosage: 210 ML, VIA DISTAL RADIAL ARTERY, ONCE
     Route: 042
     Dates: start: 20230524, end: 20230524
  2. VISIPAQUE [Suspect]
     Active Substance: IODIXANOL
     Indication: Product used for unknown indication

REACTIONS (15)
  - Acute left ventricular failure [Recovering/Resolving]
  - Tachypnoea [Recovering/Resolving]
  - Contrast encephalopathy [Recovering/Resolving]
  - Contrast media allergy [Recovering/Resolving]
  - Chest discomfort [Recovering/Resolving]
  - Mouth breathing [Recovering/Resolving]
  - Gaze palsy [Recovering/Resolving]
  - Ecchymosis [Recovering/Resolving]
  - Cyanosis [Recovering/Resolving]
  - Aphasia [Recovering/Resolving]
  - Anuria [Recovering/Resolving]
  - Confusional state [Recovering/Resolving]
  - Nausea [Recovering/Resolving]
  - Vomiting [Recovering/Resolving]
  - Hyperhidrosis [Recovering/Resolving]

NARRATIVE: CASE EVENT DATE: 20230524
